FAERS Safety Report 7627171-8 (Version None)
Quarter: 2011Q3

REPORT INFORMATION
  Report Type: 
  Country: None (occurrence: None)
  Receive Date: 20110721
  Receipt Date: 20110120
  Transmission Date: 20111222
  Serious: No
  Sender: FDA-Public Use
  Company Number: US-BAYER-2011-008255

PATIENT
  Age: 60 Year
  Sex: Female

DRUGS (4)
  1. CITALOPRAM [Concomitant]
     Dosage: 10 MG, TAB
  2. VESICARE [Concomitant]
     Dosage: 5 MG TAB, UNK
  3. BETASERON [Suspect]
     Dosage: 0.25 ML, QOD
     Route: 058
  4. CALCIUM WITH VITAMIN D [Concomitant]

REACTIONS (1)
  - INJECTION SITE PAIN [None]
